FAERS Safety Report 6192925-4 (Version None)
Quarter: 2009Q2

REPORT INFORMATION
  Report Type: 
  Country: None (occurrence: None)
  Receive Date: 20090518
  Receipt Date: 20090511
  Transmission Date: 20091009
  Serious: Yes (Hospitalization)
  Sender: FDA-Public Use
  Company Number: DE-ABBOTT-09P-062-0570432-00

PATIENT
  Sex: Female
  Weight: 57 kg

DRUGS (7)
  1. HUMIRA [Suspect]
     Indication: RHEUMATOID ARTHRITIS
     Dates: start: 20090324, end: 20090415
  2. HUMIRA [Suspect]
     Dates: start: 20090428
  3. METOPROLOL [Concomitant]
     Indication: DRUG USE FOR UNKNOWN INDICATION
     Dosage: 1-0-0
  4. SERTRALINE [Concomitant]
     Indication: DEPRESSION
     Dosage: 1-0-0
     Route: 048
  5. TOPIRAMATE [Concomitant]
     Indication: MIGRAINE
     Dosage: 0-0-2
  6. OXAZEPAM [Concomitant]
     Indication: SLEEP DISORDER
  7. ANTIBIOTIC [Concomitant]
     Indication: NEUROBORRELIOSIS
     Dosage: INTERMITTENTLY FOR 10 DAYS

REACTIONS (1)
  - BURSA DISORDER [None]
